FAERS Safety Report 24844014 (Version 2)
Quarter: 2025Q2

REPORT INFORMATION
  Report Type: Spontaneous
  Country: FI (occurrence: FI)
  Receive Date: 20250115
  Receipt Date: 20250513
  Transmission Date: 20250716
  Serious: Yes (Other)
  Sender: RANBAXY
  Company Number: FI-SUN PHARMACEUTICAL INDUSTRIES LTD-2025RR-488837

PATIENT
  Age: 64 Year
  Sex: Male

DRUGS (1)
  1. ATORVASTATIN [Interacting]
     Active Substance: ATORVASTATIN
     Indication: Dyslipidaemia
     Dosage: 80 MILLIGRAM, DAILY
     Route: 065

REACTIONS (3)
  - Immune-mediated myositis [Not Recovered/Not Resolved]
  - Drug level increased [Not Recovered/Not Resolved]
  - Drug-genetic interaction [Not Recovered/Not Resolved]
